FAERS Safety Report 5042450-9 (Version None)
Quarter: 2006Q3

REPORT INFORMATION
  Report Type: 
  Country: None (occurrence: None)
  Receive Date: 20060705
  Receipt Date: 20060626
  Transmission Date: 20061208
  Serious: Yes (Life-Threatening, Hospitalization)
  Sender: FDA-Public Use
  Company Number: PHRM2006FR01913

PATIENT
  Age: 42 Year
  Sex: Male

DRUGS (2)
  1. LIORESAL [Suspect]
     Dosage: 5 MG, TID
     Route: 048
     Dates: start: 20060421, end: 20060509
  2. LIORESAL [Suspect]
     Dosage: 10 MG, TID
     Route: 048
     Dates: start: 20060510, end: 20060512

REACTIONS (2)
  - CARDIAC ARREST [None]
  - RASH [None]
